FAERS Safety Report 18668724 (Version 1)
Quarter: 2020Q4

REPORT INFORMATION
  Report Type: Spontaneous
  Country: US (occurrence: US)
  Receive Date: 20201224
  Receipt Date: 20201224
  Transmission Date: 20210114
  Serious: No
  Sender: FDA-Public Use
  Company Number: None

PATIENT

DRUGS (1)
  1. LAMPIT [Suspect]
     Active Substance: NIFURTIMOX

REACTIONS (2)
  - Product label confusion [None]
  - Product label issue [None]
